FAERS Safety Report 4381854-4 (Version None)
Quarter: 2004Q2

REPORT INFORMATION
  Report Type: 
  Country: None (occurrence: None)
  Receive Date: 20040615
  Receipt Date: 20040213
  Transmission Date: 20050107
  Serious: Yes (Other)
  Sender: FDA-Public Use
  Company Number: ALMO2004009

PATIENT
  Age: 65 Year
  Sex: Female

DRUGS (1)
  1. ALMOGRAN [Suspect]
     Indication: MIGRAINE
     Dosage: 12.5 MG DAILY PO
     Route: 048

REACTIONS (2)
  - ACCIDENT [None]
  - AMNESIA [None]
